FAERS Safety Report 5618788-0 (Version None)
Quarter: 2008Q1

REPORT INFORMATION
  Report Type: 
  Country: None (occurrence: None)
  Receive Date: 20080207
  Receipt Date: 20080128
  Transmission Date: 20080703
  Serious: Yes (Other)
  Sender: FDA-Public Use
  Company Number: US-PFIZER INC-2007101364

PATIENT

DRUGS (1)
  1. LYRICA [Suspect]

REACTIONS (2)
  - DIZZINESS [None]
  - DYSSTASIA [None]
